FAERS Safety Report 4322484-X (Version None)
Quarter: 2004Q1

REPORT INFORMATION
  Report Type: 
  Country: None (occurrence: None)
  Receive Date: 20040319
  Receipt Date: 20040309
  Transmission Date: 20041129
  Serious: Yes (Hospitalization)
  Sender: FDA-Public Use
  Company Number: BRO-007156

PATIENT
  Age: 63 Year
  Sex: Male

DRUGS (10)
  1. IOPAMIDOL-370 [Suspect]
     Indication: ARTERIOGRAM CORONARY
     Dosage: 325 MG; A FEW MINS
     Route: 022
     Dates: start: 20040113, end: 20040113
  2. IOPAMIDOL-370 [Suspect]
     Indication: ANGINA PECTORIS
     Dosage: 105 ML;  A FEW MINS
     Route: 022
     Dates: start: 20040115, end: 20040115
  3. TICLOPIDINE HCL [Suspect]
     Dosage: 200 MG;  PO
     Route: 048
     Dates: start: 20040109, end: 20040117
  4. ASPIRIN [Suspect]
     Dosage: 200 MG; PO
     Route: 048
     Dates: start: 20040109, end: 20040117
  5. NICORANDIL / SIGMAR (BATCH # (S) : UNK) [Suspect]
     Dosage: 15 MG; PO
     Route: 048
     Dates: start: 20040109, end: 20040117
  6. ENALAPRIL MALEATE [Suspect]
     Dosage: 5 MG; PO
     Route: 048
     Dates: start: 20040109, end: 20040117
  7. LIPITOR [Suspect]
     Dosage: 10 MG; PO
     Route: 048
     Dates: start: 20040109, end: 20040117
  8. GLICLAZIDE / GLIMICRON (BATCH # (S) : UNK) [Suspect]
     Dosage: SY
  9. FAROM [Concomitant]
  10. ANTIBIOTIC [Concomitant]

REACTIONS (3)
  - ERYTHEMA MULTIFORME [None]
  - RASH [None]
  - RASH GENERALISED [None]
